FAERS Safety Report 9905439 (Version 1)
Quarter: 2014Q1

REPORT INFORMATION
  Report Type: Spontaneous
  Country: US (occurrence: None)
  Receive Date: 20140207
  Receipt Date: 20140207
  Transmission Date: 20141002
  Serious: Yes (Other)
  Sender: FDA-Public Use
  Company Number: DL2014-0135

PATIENT
  Age: 19 Year
  Sex: Female

DRUGS (3)
  1. MIFEPRISTONE [Suspect]
     Indication: ABORTION INDUCED
     Route: 048
     Dates: start: 20131213
  2. MISOPROSTOL [Suspect]
     Route: 002
     Dates: start: 20131214
  3. AZITHROMYCIN [Concomitant]

REACTIONS (2)
  - Anaemia [None]
  - Haemorrhage [None]
